FAERS Safety Report 24862914 (Version 2)
Quarter: 2025Q1

REPORT INFORMATION
  Report Type: Spontaneous
  Country: DE (occurrence: DE)
  Receive Date: 20250120
  Receipt Date: 20250228
  Transmission Date: 20250409
  Serious: Yes (Death, Other)
  Sender: ALEXION PHARMACEUTICALS
  Company Number: DE-ALXN-202501EEA013827DE

PATIENT
  Weight: 132 kg

DRUGS (1)
  1. SOLIRIS [Suspect]
     Active Substance: ECULIZUMAB
     Indication: Atypical haemolytic uraemic syndrome

REACTIONS (1)
  - Death [Fatal]
